FAERS Safety Report 17830057 (Version 1)
Quarter: 2020Q2

REPORT INFORMATION
  Report Type: Spontaneous
  Country: MT (occurrence: MT)
  Receive Date: 20200527
  Receipt Date: 20200527
  Transmission Date: 20200714
  Serious: Yes (Hospitalization)
  Sender: FDA-Public Use
  Company Number: MT-MYLANLABS-2020M1051595

PATIENT
  Age: 71 Year
  Sex: Male

DRUGS (2)
  1. OLANZAPINE. [Suspect]
     Active Substance: OLANZAPINE
     Indication: HALLUCINATION
     Route: 065
  2. NORTRIPTYLINE [Concomitant]
     Active Substance: NORTRIPTYLINE
     Indication: DEPRESSION
     Route: 065

REACTIONS (3)
  - Mobility decreased [Recovering/Resolving]
  - Condition aggravated [Recovering/Resolving]
  - Parkinson^s disease [Recovering/Resolving]
